FAERS Safety Report 7297811-4 (Version None)
Quarter: 2011Q1

REPORT INFORMATION
  Report Type: 
  Country: None (occurrence: None)
  Receive Date: 20110217
  Receipt Date: 20110207
  Transmission Date: 20110831
  Serious: No
  Sender: FDA-Public Use
  Company Number: BR-ELI_LILLY_AND_COMPANY-BR201101006468

PATIENT
  Sex: Female

DRUGS (1)
  1. BYETTA [Suspect]
     Indication: WEIGHT DECREASED
     Dosage: 10 UG, UNKNOWN
     Route: 065

REACTIONS (4)
  - OFF LABEL USE [None]
  - NAUSEA [None]
  - TOOTH DISORDER [None]
  - WEIGHT DECREASED [None]
